FAERS Safety Report 20830806 (Version 1)
Quarter: 2022Q2

REPORT INFORMATION
  Report Type: Spontaneous
  Country: FR (occurrence: FR)
  Receive Date: 20220515
  Receipt Date: 20220515
  Transmission Date: 20220721
  Serious: Yes (Hospitalization)
  Sender: FDA-Public Use
  Company Number: None

PATIENT
  Age: 56 Year
  Sex: Male
  Weight: 71 kg

DRUGS (2)
  1. METHOTREXATE (METHOTREXATE SODIUM) [Suspect]
     Active Substance: METHOTREXATE SODIUM
     Indication: B-cell lymphoma
     Dosage: METHOTREXATE TEVA 10 PER CENT (5 G/50 ML), 3 G/M2, DURATION: 94 DAYS
     Route: 042
     Dates: start: 20211029, end: 20220131
  2. METHOTREXATE [Suspect]
     Active Substance: METHOTREXATE
     Indication: B-cell lymphoma
     Dosage: UNIT DOSE: 15 MG, STRENGTH: 25 MG/ML, DURATION : 35 DAYS
     Route: 037
     Dates: start: 20211227, end: 20220131

REACTIONS (1)
  - Toxic leukoencephalopathy [Not Recovered/Not Resolved]

NARRATIVE: CASE EVENT DATE: 20220214
